FAERS Safety Report 7267975-7 (Version None)
Quarter: 2011Q1

REPORT INFORMATION
  Report Type: 
  Country: None (occurrence: None)
  Receive Date: 20110201
  Receipt Date: 20110118
  Transmission Date: 20110831
  Serious: Yes (Hospitalization, Other)
  Sender: FDA-Public Use
  Company Number: FR-WATSON-2011-01155

PATIENT
  Sex: Male
  Weight: 9.12 kg

DRUGS (1)
  1. ALBUTEROL SULFATE AUTOHALER [Suspect]
     Indication: BRONCHITIS
     Dosage: UNK
     Route: 055
     Dates: start: 20110115

REACTIONS (2)
  - RESPIRATORY DISORDER [None]
  - OXYGEN SATURATION ABNORMAL [None]
